FAERS Safety Report 5888793-8 (Version None)
Quarter: 2008Q3

REPORT INFORMATION
  Report Type: 
  Country: None (occurrence: None)
  Receive Date: 20080919
  Receipt Date: 20080821
  Transmission Date: 20090109
  Serious: No
  Sender: FDA-Public Use
  Company Number: US-JNJFOC-20080805324

PATIENT
  Sex: Female
  Weight: 129.28 kg

DRUGS (2)
  1. INVEGA [Suspect]
     Indication: SCHIZOPHRENIA
     Route: 048
  2. NEXIUM [Concomitant]
     Indication: GASTROOESOPHAGEAL REFLUX DISEASE
     Route: 048

REACTIONS (1)
  - WEIGHT INCREASED [None]
